FAERS Safety Report 9325448 (Version 1)
Quarter: 2013Q2

REPORT INFORMATION
  Report Type: Spontaneous
  Country: AU (occurrence: AU)
  Receive Date: 20130604
  Receipt Date: 20130604
  Transmission Date: 20140414
  Serious: Yes (Hospitalization)
  Sender: FDA-Public Use
  Company Number: AU-009507513-1306AUS000374

PATIENT
  Age: 66 Year
  Sex: Male

DRUGS (3)
  1. RIBAVIRIN [Suspect]
     Dosage: UNK
  2. TELAPREVIR [Suspect]
     Dosage: 3 TIMES
     Route: 048
     Dates: start: 20130218, end: 20130401
  3. INTERFERON (UNSPECIFIED) [Suspect]
     Dosage: DOSE UNSPECIFIED
     Dates: start: 20130218

REACTIONS (1)
  - Rash [Unknown]
